FAERS Safety Report 21331882 (Version 1)
Quarter: 2022Q3

REPORT INFORMATION
  Report Type: Report from Study
  Country: IT (occurrence: IT)
  Receive Date: 20220914
  Receipt Date: 20220914
  Transmission Date: 20221027
  Serious: Yes (Hospitalization)
  Sender: FDA-Public Use
  Company Number: None

PATIENT
  Age: 12 Year
  Sex: Female
  Weight: 44 kg

DRUGS (5)
  1. VINCRISTINE [Suspect]
     Active Substance: VINCRISTINE
     Indication: Ewing^s sarcoma
     Dosage: UNIT DOSE : 2 MG , VINCRISTINA TEVA ITALIA
     Dates: start: 20220708, end: 20220708
  2. CYCLOPHOSPHAMIDE [Suspect]
     Active Substance: CYCLOPHOSPHAMIDE
     Indication: Ewing^s sarcoma
     Dosage: UNIT DOSE : 1650 MG
     Dates: start: 20220708, end: 20220708
  3. ZOFRAN [Concomitant]
     Active Substance: ONDANSETRON HYDROCHLORIDE
     Indication: Prophylaxis of nausea and vomiting
     Dosage: 8 MILLIGRAM DAILY; 8 MG / DAY , DURATION : 2 DAY
     Dates: start: 20220707, end: 20220709
  4. DECAPEPTYL [Concomitant]
     Indication: Product used for unknown indication
     Dosage: 1 VIAL OF 0.1 MG, UNIT DOSE : 0.1 MG
     Dates: start: 20220725, end: 20220725
  5. MESNA [Concomitant]
     Active Substance: MESNA
     Indication: Chemotherapy toxicity attenuation
     Dosage: UNIT DOSE: 550 MG
     Dates: start: 20220707, end: 20220707

REACTIONS (2)
  - Febrile neutropenia [Recovered/Resolved]
  - Stomatitis [Recovered/Resolved]

NARRATIVE: CASE EVENT DATE: 20220722
